FAERS Safety Report 10277790 (Version 1)
Quarter: 2014Q3

REPORT INFORMATION
  Report Type: Spontaneous
  Country: MX (occurrence: MX)
  Receive Date: 20140704
  Receipt Date: 20140704
  Transmission Date: 20150326
  Serious: Yes (Death, Other)
  Sender: FDA-Public Use
  Company Number: MX-AMGEN-MEXSP2014049518

PATIENT
  Age: 56 Year
  Sex: Male

DRUGS (1)
  1. ARANESP [Suspect]
     Active Substance: DARBEPOETIN ALFA
     Indication: ANAEMIA
     Dosage: 30 MG, QWK
     Route: 058

REACTIONS (6)
  - Basal ganglia haemorrhage [Unknown]
  - Hypertension [Unknown]
  - Haemorrhage [Unknown]
  - Headache [Unknown]
  - Death [Fatal]
  - Hemiparesis [Unknown]
